FAERS Safety Report 15359323 (Version 2)
Quarter: 2018Q4

REPORT INFORMATION
  Report Type: Spontaneous
  Country: FR (occurrence: FR)
  Receive Date: 20180907
  Receipt Date: 20181023
  Transmission Date: 20190204
  Serious: Yes (Hospitalization)
  Sender: FDA-Public Use
  Company Number: FR-SUN PHARMACEUTICAL INDUSTRIES LTD-2018R1-183700

PATIENT
  Age: 12 Year
  Sex: Male
  Weight: 34 kg

DRUGS (2)
  1. IBUPROFENE [Suspect]
     Active Substance: IBUPROFEN
     Indication: SWELLING
     Dosage: 1200 MG, DAILY
     Route: 048
     Dates: start: 20180113, end: 20180115
  2. PARACETAMOL [Suspect]
     Active Substance: ACETAMINOPHEN
     Indication: PAIN
     Dosage: NON RENSEIGNEE
     Route: 048
     Dates: start: 20180113

REACTIONS (3)
  - Abdominal pain upper [Recovering/Resolving]
  - Vomiting [Recovered/Resolved]
  - Gastritis [Recovered/Resolved]

NARRATIVE: CASE EVENT DATE: 20180115
